FAERS Safety Report 14410600 (Version 2)
Quarter: 2018Q4

REPORT INFORMATION
  Report Type: Spontaneous
  Country: GB (occurrence: GB)
  Receive Date: 20180119
  Receipt Date: 20181009
  Transmission Date: 20190204
  Serious: Yes (Other)
  Sender: FDA-Public Use
  Company Number: PHHY2017GB190376

PATIENT
  Age: 43 Year
  Sex: Male

DRUGS (3)
  1. FUSIDIC ACID [Suspect]
     Active Substance: FUSIDIC ACID
     Indication: ALOPECIA SCARRING
     Dosage: 1500 MG, UNK
     Route: 065
  2. CLARITHROMYCIN. [Suspect]
     Active Substance: CLARITHROMYCIN
     Indication: ALOPECIA SCARRING
     Dosage: 500 MG, QD
     Route: 065
  3. RIFAMPICIN [Suspect]
     Active Substance: RIFAMPIN
     Indication: ALOPECIA SCARRING
     Dosage: 600 MG, UNK
     Route: 065

REACTIONS (2)
  - Neutropenia [Unknown]
  - Disease recurrence [Unknown]
